FAERS Safety Report 13067983 (Version 9)
Quarter: 2018Q2

REPORT INFORMATION
  Report Type: Spontaneous
  Country: JP (occurrence: JP)
  Receive Date: 20161228
  Receipt Date: 20180525
  Transmission Date: 20180711
  Serious: Yes (Other)
  Sender: FDA-Public Use
  Company Number: PHJP2016JP037872

PATIENT
  Age: 60 Year
  Sex: Female

DRUGS (23)
  1. COSENTYX [Suspect]
     Active Substance: SECUKINUMAB
     Dosage: 300 MG, QMO
     Route: 058
     Dates: start: 20160610, end: 20161028
  2. CICLOSPORIN [Suspect]
     Active Substance: CYCLOSPORINE
     Dosage: 100 MG, UNK
     Route: 048
  3. CICLOSPORIN [Suspect]
     Active Substance: CYCLOSPORINE
     Dosage: 50 MG, UNK
     Route: 048
  4. OLMETEC [Concomitant]
     Active Substance: OLMESARTAN MEDOXOMIL
     Indication: PRODUCT USED FOR UNKNOWN INDICATION
     Dosage: 20 MG, QD
     Route: 048
     Dates: start: 20160506, end: 20160909
  5. NIPOLAZIN [Concomitant]
     Indication: PSORIASIS
     Dosage: UNK
     Route: 065
  6. DOVOBET [Concomitant]
     Active Substance: BETAMETHASONE\CALCIPOTRIENE
     Indication: PSORIASIS
     Dosage: UNK
     Route: 065
  7. STELARA [Concomitant]
     Active Substance: USTEKINUMAB
     Dosage: 1 DF, UNK
     Route: 065
  8. EPINASTINE. [Concomitant]
     Active Substance: EPINASTINE HYDROCHLORIDE
     Indication: PRODUCT USED FOR UNKNOWN INDICATION
     Dosage: 20 MG, QD
     Route: 048
     Dates: start: 20160506, end: 20160513
  9. KREMEZIN [Concomitant]
     Active Substance: ACTIVATED CHARCOAL
     Indication: PSORIASIS
     Dosage: UNK
     Route: 065
  10. XYZAL [Concomitant]
     Active Substance: LEVOCETIRIZINE DIHYDROCHLORIDE
     Indication: PSORIASIS
     Dosage: UNK
     Route: 065
  11. COSENTYX [Suspect]
     Active Substance: SECUKINUMAB
     Indication: PSORIASIS
     Dosage: 300 MG, UNK
     Route: 058
     Dates: start: 20160506
  12. COSENTYX [Suspect]
     Active Substance: SECUKINUMAB
     Dosage: UNK
     Route: 058
  13. CICLOSPORIN [Suspect]
     Active Substance: CYCLOSPORINE
     Dosage: 50 MG, UNK
     Route: 048
  14. LORATADINE. [Concomitant]
     Active Substance: LORATADINE
     Indication: PRURITUS
     Dosage: 10 MG, QD
     Route: 048
     Dates: start: 20160527, end: 20161221
  15. DERMOVATE [Concomitant]
     Active Substance: CLOBETASOL
     Indication: PSORIASIS
     Dosage: UNK
     Route: 065
  16. CICLOSPORIN [Suspect]
     Active Substance: CYCLOSPORINE
     Dosage: 150 MG, UNK
     Route: 048
  17. ANTEBATE [Concomitant]
     Active Substance: BETAMETHASONE DIPROPIONATE
     Indication: PRODUCT USED FOR UNKNOWN INDICATION
     Dosage: (QS)., BID
     Route: 061
     Dates: start: 20160506, end: 20161028
  18. CICLOSPORIN [Suspect]
     Active Substance: CYCLOSPORINE
     Indication: PSORIASIS
     Dosage: 200 MG, UNK
     Route: 048
  19. CICLOSPORIN [Suspect]
     Active Substance: CYCLOSPORINE
     Dosage: 100 MG, UNK
     Route: 048
  20. STELARA [Concomitant]
     Active Substance: USTEKINUMAB
     Dosage: 2 DF, UNK
     Route: 065
  21. FEBURIC [Concomitant]
     Active Substance: FEBUXOSTAT
     Indication: PSORIASIS
     Dosage: UNK
     Route: 065
  22. STELARA [Concomitant]
     Active Substance: USTEKINUMAB
     Indication: PSORIASIS
     Dosage: 1 DF, UNK
     Route: 065
  23. TALION [Concomitant]
     Active Substance: BEPOTASTINE
     Indication: PSORIASIS
     Dosage: UNK
     Route: 065

REACTIONS (7)
  - Pemphigus [Recovering/Resolving]
  - Dermatitis psoriasiform [Unknown]
  - Macule [Unknown]
  - Rash [Recovered/Resolved]
  - Skin erosion [Recovering/Resolving]
  - Pruritus [Unknown]
  - Psoriasis [Unknown]

NARRATIVE: CASE EVENT DATE: 2016
